FAERS Safety Report 6671889-0 (Version None)
Quarter: 2010Q2

REPORT INFORMATION
  Report Type: 
  Country: None (occurrence: None)
  Receive Date: 20100407
  Receipt Date: 20100326
  Transmission Date: 20101027
  Serious: Yes (Other)
  Sender: FDA-Public Use
  Company Number: US-PFIZER INC-2010040699

PATIENT
  Sex: Male
  Weight: 66 kg

DRUGS (4)
  1. ALPRAZOLAM [Suspect]
     Indication: ANXIETY
     Dosage: 0.25 MG, TWO AND A HALF TABLETS, DAILY
     Route: 048
     Dates: start: 20100301, end: 20100301
  2. LIPITOR [Concomitant]
     Indication: BLOOD CHOLESTEROL INCREASED
     Dosage: 10 MG, 1X/DAY
     Route: 048
  3. TAMSULOSIN HYDROCHLORIDE [Concomitant]
     Indication: MICTURITION DISORDER
     Dosage: 4 MG, 1X/DAY
     Route: 048
  4. VASOTEC [Concomitant]
     Indication: BLOOD PRESSURE ABNORMAL
     Dosage: 5 MG, 2X/DAY
     Route: 048

REACTIONS (4)
  - ABDOMINAL DISCOMFORT [None]
  - COELIAC DISEASE [None]
  - DIARRHOEA [None]
  - FLATULENCE [None]
